FAERS Safety Report 9580517 (Version 8)
Quarter: 2013Q4

REPORT INFORMATION
  Report Type: Spontaneous
  Country: US (occurrence: US)
  Receive Date: 20131002
  Receipt Date: 20131030
  Transmission Date: 20140711
  Serious: Yes (Other)
  Sender: FDA-Public Use
  Company Number: US-SA-2013SA095612

PATIENT
  Age: 15 Year
  Sex: Male
  Weight: 85.6 kg

DRUGS (20)
  1. FABRAZYME [Suspect]
     Indication: FABRY^S DISEASE
     Route: 042
     Dates: start: 20080128
  2. PREDNISONE [Concomitant]
     Indication: PREMEDICATION
     Dosage: THE NIGHT BEFORE HIS INFUSION
     Route: 048
  3. PREDNISONE [Concomitant]
     Indication: PREMEDICATION
     Route: 042
  4. DIPHENHYDRAMINE [Concomitant]
     Indication: PREMEDICATION
     Route: 042
  5. RANITIDINE [Concomitant]
     Indication: PREMEDICATION
     Dosage: PRIOR TO INFUSION
  6. ZOLOFT [Concomitant]
     Route: 048
  7. LYRICA [Concomitant]
  8. CONCERTA [Concomitant]
     Indication: ATTENTION DEFICIT/HYPERACTIVITY DISORDER
  9. CONCERTA [Concomitant]
     Indication: ATTENTION DEFICIT/HYPERACTIVITY DISORDER
  10. IRON [Concomitant]
  11. VITAMIN C [Concomitant]
  12. TYLENOL [Concomitant]
     Indication: PAIN
  13. OXYCONTIN [Concomitant]
     Indication: PAIN
     Dosage: EVERY 4 IF NEEDED
  14. OXYCONTIN [Concomitant]
     Indication: PAIN
     Route: 048
  15. ATENOLOL [Concomitant]
     Indication: BLOOD PRESSURE
     Dates: start: 20130904
  16. ATENOLOL [Concomitant]
     Indication: TACHYCARDIA
     Dates: start: 20130904
  17. PREGABALIN [Concomitant]
     Indication: PAIN
     Route: 048
  18. VITAMIN D3 [Concomitant]
     Indication: VITAMIN D DECREASED
     Dosage: DOSE:1000 UNIT(S)
     Route: 048
  19. ACETAMINOPHEN [Concomitant]
     Indication: PAIN
     Route: 048
  20. METHYLPHENIDATE [Concomitant]
     Indication: ATTENTION DEFICIT/HYPERACTIVITY DISORDER
     Route: 048

REACTIONS (8)
  - Disease progression [Not Recovered/Not Resolved]
  - Rash erythematous [Not Recovered/Not Resolved]
  - Paraesthesia [Not Recovered/Not Resolved]
  - Left ventricular dysfunction [Not Recovered/Not Resolved]
  - Cardiac failure [Not Recovered/Not Resolved]
  - Body temperature increased [Not Recovered/Not Resolved]
  - Chills [Not Recovered/Not Resolved]
  - Blood immunoglobulin G increased [Not Recovered/Not Resolved]
